FAERS Safety Report 6386944-2 (Version None)
Quarter: 2009Q4

REPORT INFORMATION
  Report Type: 
  Country: None (occurrence: None)
  Receive Date: 20091002
  Receipt Date: 20090824
  Transmission Date: 20100525
  Serious: Yes (Hospitalization, Other)
  Sender: FDA-Public Use
  Company Number: US-BAXTER-2008BH010175

PATIENT
  Age: 22 Year
  Sex: Male
  Weight: 90 kg

DRUGS (3)
  1. HEPARIN SODIUM INJECTION [Suspect]
     Indication: DEEP VEIN THROMBOSIS
     Route: 040
     Dates: start: 20070108, end: 20070108
  2. HEPARIN SODIUM INJECTION [Suspect]
     Route: 065
     Dates: start: 20070110, end: 20070110
  3. HEPARIN SODIUM 5,000 UNITS IN DEXTROSE 5% [Suspect]
     Indication: DEEP VEIN THROMBOSIS
     Route: 042
     Dates: start: 20070108, end: 20070118

REACTIONS (6)
  - AXILLARY VEIN THROMBOSIS [None]
  - CHEST PAIN [None]
  - HEPARIN-INDUCED THROMBOCYTOPENIA [None]
  - HYPERSENSITIVITY [None]
  - POST PROCEDURAL HAEMORRHAGE [None]
  - SUPERIOR VENA CAVAL OCCLUSION [None]
